FAERS Safety Report 8576837-4 (Version None)
Quarter: 2012Q3

REPORT INFORMATION
  Report Type: 
  Country: None (occurrence: None)
  Receive Date: 20120807
  Receipt Date: 20120420
  Transmission Date: 20120928
  Serious: Yes (Death, Hospitalization)
  Sender: FDA-Public Use
  Company Number: DE-CELGENEUS-062-21660-12061600

PATIENT
  Age: 68 Year
  Sex: Female
  Weight: 56 kg

DRUGS (1)
  1. ABRAXANE [Suspect]
     Dosage: 164 MILLIGRAM
     Route: 041
     Dates: start: 20111215, end: 20120226

REACTIONS (15)
  - BREAST CANCER METASTATIC [None]
  - BLOOD CREATININE INCREASED [None]
  - ARTHRALGIA [None]
  - NAUSEA [None]
  - BLOOD BILIRUBIN INCREASED [None]
  - GENERAL PHYSICAL HEALTH DETERIORATION [None]
  - BLOOD ALKALINE PHOSPHATASE INCREASED [None]
  - ALOPECIA [None]
  - TRANSAMINASES INCREASED [None]
  - PAIN [None]
  - INFECTION [None]
  - MYALGIA [None]
  - VOMITING [None]
  - PYREXIA [None]
  - ANAEMIA [None]
